FAERS Safety Report 5302238-8 (Version None)
Quarter: 2007Q2

REPORT INFORMATION
  Report Type: 
  Country: None (occurrence: None)
  Receive Date: 20070419
  Receipt Date: 20060613
  Transmission Date: 20071010
  Serious: No
  Sender: FDA-Public Use
  Company Number: 1-55404691

PATIENT
  Age: 42 Year
  Sex: Male

DRUGS (5)
  1. LITHIUM CARBONATE [Suspect]
  2. NEURONTIN [Suspect]
     Dosage: 900MG UNKNOWN
     Route: 065
  3. LUVOX [Suspect]
  4. KLONOPIN [Suspect]
  5. ZOLOFT [Suspect]
     Dosage: 150MG PER DAY
     Route: 065

REACTIONS (3)
  - EATING DISORDER [None]
  - INSOMNIA [None]
  - SLEEP WALKING [None]
